FAERS Safety Report 8561514-6 (Version None)
Quarter: 2012Q3

REPORT INFORMATION
  Report Type: 
  Country: None (occurrence: None)
  Receive Date: 20120802
  Receipt Date: 20120720
  Transmission Date: 20120928
  Serious: No
  Sender: FDA-Public Use
  Company Number: US-ASTRAZENECA-2012SE51200

PATIENT
  Age: 66 Year
  Sex: Female
  Weight: 81.6 kg

DRUGS (14)
  1. NEXIUM [Suspect]
     Route: 048
  2. PRILOSEC [Suspect]
     Indication: GASTRIC ULCER
     Route: 048
  3. NEXIUM [Suspect]
     Indication: GASTROOESOPHAGEAL REFLUX DISEASE
     Route: 048
  4. ZOCOR [Concomitant]
     Indication: BLOOD CHOLESTEROL ABNORMAL
  5. LIVER OIL [Concomitant]
  6. NEXIUM [Suspect]
     Indication: GASTRIC ULCER
     Route: 048
  7. LORATADINE [Concomitant]
     Indication: SEASONAL ALLERGY
  8. ASCORBIC ACID [Concomitant]
  9. ATENOLOL [Concomitant]
     Indication: HYPERTENSION
  10. NEXIUM [Suspect]
     Route: 048
  11. PRILOSEC [Suspect]
     Indication: GASTROOESOPHAGEAL REFLUX DISEASE
     Route: 048
  12. CALCIUM TABLET [Concomitant]
  13. COQ10 [Concomitant]
  14. MULTI-VITAMINS [Concomitant]

REACTIONS (3)
  - DRUG INEFFECTIVE [None]
  - GASTRIC ULCER [None]
  - OFF LABEL USE [None]
